FAERS Safety Report 5816923-2 (Version None)
Quarter: 2008Q3

REPORT INFORMATION
  Report Type: 
  Country: None (occurrence: None)
  Receive Date: 20080722
  Receipt Date: 20080715
  Transmission Date: 20090109
  Serious: Yes (Other)
  Sender: FDA-Public Use
  Company Number: FR-BAYER-200822308GPV

PATIENT
  Sex: Male

DRUGS (2)
  1. CIFLOX [Suspect]
     Indication: URINARY TRACT INFECTION
     Route: 042
  2. CIFLOX [Suspect]
     Route: 048

REACTIONS (1)
  - DUODENAL ULCER HAEMORRHAGE [None]
